FAERS Safety Report 17785450 (Version 2)
Quarter: 2020Q3

REPORT INFORMATION
  Report Type: Report from Study
  Country: BE (occurrence: BE)
  Receive Date: 20200514
  Receipt Date: 20200925
  Transmission Date: 20201102
  Serious: Yes (Hospitalization)
  Sender: FDA-Public Use
  Company Number: BE-PFIZER INC-2020191173

PATIENT
  Age: 60 Year
  Sex: Male
  Weight: 73 kg

DRUGS (6)
  1. AVELUMAB [Suspect]
     Active Substance: AVELUMAB
     Indication: BLADDER TRANSITIONAL CELL CARCINOMA
     Dosage: UNK UNK, CYCLIC (ONCE EVERY TWO WEEKS)
     Route: 042
     Dates: start: 20200225
  2. AVELUMAB [Suspect]
     Active Substance: AVELUMAB
     Dosage: 740 MG, CYCLIC (ONCE EVERY TWO WEEKS)
     Route: 042
     Dates: start: 20200407, end: 20200407
  3. GEMCITABINE HYDROCHLORIDE. [Suspect]
     Active Substance: GEMCITABINE HYDROCHLORIDE
     Indication: BLADDER TRANSITIONAL CELL CARCINOMA
     Dosage: CYCLIC (ONCE EVERY 4 WEEKS, ON D1 AND D15)
     Route: 042
     Dates: start: 20200225
  4. GEMCITABINE HYDROCHLORIDE. [Suspect]
     Active Substance: GEMCITABINE HYDROCHLORIDE
     Dosage: 2000 MG, CYCLIC (ONCE EVERY 4 WEEKS)
     Route: 042
     Dates: start: 20200407, end: 20200407
  5. PACLITAXEL. [Suspect]
     Active Substance: PACLITAXEL
     Dosage: 154.1 MG, CYCLIC (ONCE EVERY 4 WEEKS) D1 AND D15 Q4W
     Route: 042
     Dates: start: 20200407, end: 20200407
  6. PACLITAXEL. [Suspect]
     Active Substance: PACLITAXEL
     Indication: BLADDER TRANSITIONAL CELL CARCINOMA
     Dosage: D1 AND D15 Q4W, CYCLIC (ONCE EVERY 4 WEEKS)
     Route: 042
     Dates: start: 20200225

REACTIONS (1)
  - Kidney infection [Recovered/Resolved]

NARRATIVE: CASE EVENT DATE: 20200420
